FAERS Safety Report 15326440 (Version 2)
Quarter: 2018Q3

REPORT INFORMATION
  Report Type: Spontaneous
  Country: US (occurrence: US)
  Receive Date: 20180828
  Receipt Date: 20180906
  Transmission Date: 20181010
  Serious: Yes (Death)
  Sender: FDA-Public Use
  Company Number: US-TASMAN PHARMA, INC.-2018TSM00045

PATIENT
  Sex: Female
  Weight: 58.96 kg

DRUGS (5)
  1. DOCUSATE [Concomitant]
     Active Substance: DOCUSATE
     Indication: PSYCHOTIC DISORDER
  2. POLYETHYLENE GLYCOL [Concomitant]
     Active Substance: POLYETHYLENE GLYCOLS
  3. BENICAR [Concomitant]
     Active Substance: OLMESARTAN MEDOXOMIL
  4. DOCUSATE [Concomitant]
     Active Substance: DOCUSATE
     Indication: ALCOHOL INDUCED PERSISTING DEMENTIA
  5. CLOZAPINE. [Suspect]
     Active Substance: CLOZAPINE
     Dosage: 50 MG, 1X/DAY
     Dates: start: 20150504

REACTIONS (1)
  - Cardio-respiratory arrest [Fatal]
